FAERS Safety Report 5898202-0 (Version None)
Quarter: 2008Q3

REPORT INFORMATION
  Report Type: 
  Country: None (occurrence: None)
  Receive Date: 20080925
  Receipt Date: 20080915
  Transmission Date: 20090109
  Serious: Yes (Death, Other)
  Sender: FDA-Public Use
  Company Number: GB-ELI_LILLY_AND_COMPANY-GB200809003429

PATIENT
  Age: 36 Year
  Sex: Male

DRUGS (6)
  1. GEMZAR [Suspect]
     Indication: ACUTE LYMPHOCYTIC LEUKAEMIA
     Dosage: 3600 MG/M2, OVER 6 HOURS ON DAY 7
     Route: 042
  2. TOPOTECAN [Concomitant]
     Dosage: 1 MG/M2, DAILY (1/D) ON DAY 1-5.
     Route: 042
  3. VINORELBINE [Concomitant]
     Dosage: 20 MG/M2, ON DAYS 0, 7, 14, AND 21
     Route: 042
  4. THIOTEPA [Concomitant]
     Dosage: 15 MG/M2, OVER 4 HOURS ON DAY 2
     Route: 042
  5. DEXAMETHASONE [Concomitant]
     Dosage: 45 MG/M2, 3/D ON DAY 7-14.
     Route: 048
  6. NEUPOGEN [Concomitant]
     Dosage: 300 UG, START DAY 7 AND CONTINUE UNTIL ANC } 500 PER MICROLITRE
     Route: 050

REACTIONS (4)
  - ACUTE LYMPHOCYTIC LEUKAEMIA RECURRENT [None]
  - BONE MARROW FAILURE [None]
  - NEUTROPENIA [None]
  - THROMBOCYTOPENIA [None]
